FAERS Safety Report 5084834-9 (Version None)
Quarter: 2006Q3

REPORT INFORMATION
  Report Type: 
  Country: None (occurrence: None)
  Receive Date: 20060815
  Receipt Date: 20060803
  Transmission Date: 20061208
  Serious: Yes (Death, Hospitalization)
  Sender: FDA-Public Use
  Company Number: WAES 0608USA00075

PATIENT
  Sex: 0

DRUGS (1)
  1. INDOCIN [Suspect]
     Route: 054

REACTIONS (5)
  - GASTRIC MUCOSAL LESION [None]
  - HAEMATEMESIS [None]
  - NAUSEA [None]
  - OESOPHAGITIS [None]
  - UPPER GASTROINTESTINAL HAEMORRHAGE [None]
